FAERS Safety Report 5474303-6 (Version None)
Quarter: 2007Q4

REPORT INFORMATION
  Report Type: 
  Country: None (occurrence: None)
  Receive Date: 20071002
  Receipt Date: 20070629
  Transmission Date: 20080405
  Serious: No
  Sender: FDA-Public Use
  Company Number: US-ASTRAZENECA-2007UW15253

PATIENT
  Age: 80 Year
  Sex: Female
  Weight: 66.7 kg

DRUGS (8)
  1. ARIMIDEX [Suspect]
  2. METOPROLOL SUCCINATE [Suspect]
     Indication: DYSLIPIDAEMIA
     Route: 048
  3. METOPROLOL SUCCINATE [Suspect]
     Route: 048
  4. TOPROL-XL [Concomitant]
     Route: 048
  5. AMBIEN [Concomitant]
  6. MULTI-VITAMIN [Concomitant]
  7. DIOVAN [Concomitant]
  8. HYDROCHLOROTHIAZIDE [Concomitant]

REACTIONS (2)
  - DIZZINESS [None]
  - HYPERTENSION [None]
